FAERS Safety Report 4589804-2 (Version None)
Quarter: 2005Q1

REPORT INFORMATION
  Report Type: 
  Country: None (occurrence: None)
  Receive Date: 20050125
  Receipt Date: 20041102
  Transmission Date: 20050727
  Serious: No
  Sender: FDA-Public Use
  Company Number: USA040874566

PATIENT
  Age: 66 Year
  Sex: Female
  Weight: 57 kg

DRUGS (4)
  1. FORTEO [Suspect]
     Indication: OSTEOPOROSIS
     Dosage: 20 UG DAY
     Dates: start: 20040728
  2. ESTRACE [Concomitant]
  3. CALCIUM GLUCONATE [Concomitant]
  4. MULTI-VITAMINS [Concomitant]

REACTIONS (9)
  - ANXIETY [None]
  - ARTHRALGIA [None]
  - BACK PAIN [None]
  - DIZZINESS [None]
  - INSOMNIA [None]
  - KERATOCONJUNCTIVITIS SICCA [None]
  - MIDDLE INSOMNIA [None]
  - NECK PAIN [None]
  - THIRST [None]
